FAERS Safety Report 8459714-9 (Version None)
Quarter: 2012Q2

REPORT INFORMATION
  Report Type: 
  Country: None (occurrence: None)
  Receive Date: 20120622
  Receipt Date: 20120615
  Transmission Date: 20120825
  Serious: Yes (Other)
  Sender: FDA-Public Use
  Company Number: US-JNJFOC-20120609040

PATIENT
  Sex: Female
  Weight: 100.25 kg

DRUGS (12)
  1. HYDROCODONE [Concomitant]
  2. REMICADE [Suspect]
     Route: 042
     Dates: start: 20120612, end: 20120612
  3. ZOLPIDEM [Concomitant]
  4. FLUOXETINE [Concomitant]
  5. MELOXICAM [Concomitant]
  6. IMODIUM [Concomitant]
  7. GLUCOSAMINE / CHONDROITIN [Concomitant]
  8. NEXIUM [Concomitant]
  9. REMICADE [Suspect]
     Indication: CROHN'S DISEASE
     Route: 042
  10. SUCRALFATE [Concomitant]
  11. VITAMIN D [Concomitant]
  12. BENEFIBER [Concomitant]

REACTIONS (5)
  - SWOLLEN TONGUE [None]
  - MUSCLE SPASMS [None]
  - STOMATITIS [None]
  - INFUSION RELATED REACTION [None]
  - COUGH [None]
